FAERS Safety Report 8834066 (Version 1)
Quarter: 2012Q4

REPORT INFORMATION
  Report Type: 
  Country: US (occurrence: US)
  Receive Date: 20121010
  Receipt Date: 20121010
  Transmission Date: 20130627
  Serious: Yes (Other)
  Sender: FDA-Public Use
  Company Number: CHPA2012US020590

PATIENT
  Age: 52 Year
  Sex: Female

DRUGS (2)
  1. PRIVATE LABEL [Suspect]
     Indication: SMOKING CESSATION THERAPY
     Dosage: 14 mg, QD
     Route: 062
     Dates: start: 20120926, end: 20120927
  2. PRIVATE LABEL [Suspect]
     Dosage: 21 mg, Unk
     Route: 062
     Dates: start: 2011, end: 2011

REACTIONS (9)
  - Panic attack [Recovered/Resolved]
  - Blood pressure increased [Recovered/Resolved]
  - Head discomfort [Recovered/Resolved]
  - Feeling abnormal [Recovered/Resolved]
  - Drug effect increased [Unknown]
  - Hypersensitivity [Recovered/Resolved]
  - Tremor [Recovered/Resolved]
  - Underdose [Unknown]
  - Inappropriate schedule of drug administration [Unknown]
